FAERS Safety Report 13697449 (Version 1)
Quarter: 2017Q2

REPORT INFORMATION
  Report Type: Spontaneous
  Country: US (occurrence: US)
  Receive Date: 20170628
  Receipt Date: 20170628
  Transmission Date: 20170830
  Serious: No
  Sender: FDA-Public Use
  Company Number: US-BAYER-2017-122013

PATIENT
  Age: 65 Year
  Sex: Female
  Weight: 73 kg

DRUGS (13)
  1. SYNTHROID [Concomitant]
     Active Substance: LEVOTHYROXINE SODIUM
     Dosage: 137 ?G, QD
  2. MULTIVITAMIN [Concomitant]
     Active Substance: VITAMINS
  3. MIRALAX [Suspect]
     Active Substance: POLYETHYLENE GLYCOL 3350
     Indication: GASTROINTESTINAL DISORDER
     Dosage: UNK
     Route: 048
     Dates: start: 2009
  4. PHILLIPS^ LIQUID GELS STOOL SOFTENER [Suspect]
     Active Substance: DOCUSATE SODIUM
     Indication: BOWEL MOVEMENT IRREGULARITY
     Dosage: 4 TABLETS A DAY
     Dates: start: 20170622
  5. METFORMIN [Concomitant]
     Active Substance: METFORMIN HYDROCHLORIDE
     Dosage: UNK UNK, BID
  6. IRON [Concomitant]
     Active Substance: IRON
  7. TORSEMIDE. [Concomitant]
     Active Substance: TORSEMIDE
     Dosage: 60 MG, QD
  8. ALDACTONE [Concomitant]
     Active Substance: SPIRONOLACTONE
     Dosage: 300 MLG A DAY
  9. BAYER LOW DOSE [Suspect]
     Active Substance: ASPIRIN
     Indication: CEREBROVASCULAR ACCIDENT PROPHYLAXIS
     Dosage: 1 DF, QD
     Route: 048
  10. INTERFERON [Concomitant]
     Active Substance: INTERFERON
  11. PHILLIPS^ LIQUID GELS STOOL SOFTENER [Suspect]
     Active Substance: DOCUSATE SODIUM
     Indication: GASTROINTESTINAL DISORDER
     Dosage: 3 TABLETS A DAY
     Route: 048
     Dates: start: 201706, end: 20170622
  12. MIRALAX [Suspect]
     Active Substance: POLYETHYLENE GLYCOL 3350
     Indication: GASTROINTESTINAL DISORDER
     Dosage: 3 DF, QD
     Dates: start: 201701
  13. FENOFIBRATE. [Concomitant]
     Active Substance: FENOFIBRATE
     Dosage: 67 MLG

REACTIONS (13)
  - Incorrect dose administered [Unknown]
  - Flatulence [Not Recovered/Not Resolved]
  - Constipation [Not Recovered/Not Resolved]
  - Drug ineffective [Not Recovered/Not Resolved]
  - Intentional product misuse [Unknown]
  - Frequent bowel movements [None]
  - Incorrect dose administered [Unknown]
  - Product use in unapproved indication [None]
  - Bowel movement irregularity [None]
  - Discomfort [Unknown]
  - Off label use [Unknown]
  - Incorrect drug administration duration [Unknown]
  - Inappropriate prescribing [Unknown]

NARRATIVE: CASE EVENT DATE: 201612
